FAERS Safety Report 26031948 (Version 1)
Quarter: 2025Q4

REPORT INFORMATION
  Report Type: Report from Study
  Country: EU (occurrence: EU)
  Receive Date: 20251112
  Receipt Date: 20251112
  Transmission Date: 20260118
  Serious: Yes (Hospitalization)
  Sender: ABBVIE
  Company Number: EU-ABBVIE-6269541

PATIENT
  Age: 67 Year
  Sex: Female

DRUGS (4)
  1. FOSCARBIDOPA\FOSLEVODOPA [Suspect]
     Active Substance: FOSCARBIDOPA\FOSLEVODOPA
     Indication: Parkinson^s disease
     Dosage: LAST ADMINISTRATION DATE: 2025
     Route: 058
     Dates: start: 20250430
  2. FOSCARBIDOPA\FOSLEVODOPA [Suspect]
     Active Substance: FOSCARBIDOPA\FOSLEVODOPA
     Dosage: CRN: 0.26 ML/H, CR: 0.34 ML/H, CRH: 0.36 ML/H?FIRST AND LAST ADMIN DATE: 2025
     Route: 058
  3. FOSCARBIDOPA\FOSLEVODOPA [Suspect]
     Active Substance: FOSCARBIDOPA\FOSLEVODOPA
     Dosage: CRN 0.27 ML/H, CR 0.37 ML/H, CRH 0.39 ML/H, ED 0.20 ML?FIRST AND LAST ADMIN DATE: 2025
     Route: 058
  4. FOSCARBIDOPA\FOSLEVODOPA [Suspect]
     Active Substance: FOSCARBIDOPA\FOSLEVODOPA
     Dosage: CRN: 0.37 ML/H, CR: 0.42 ML/H, CRH: 0.44 ML/H, ED: 0.15 ML
     Route: 058

REACTIONS (6)
  - Feeling abnormal [Not Recovered/Not Resolved]
  - On and off phenomenon [Unknown]
  - Feeling hot [Not Recovered/Not Resolved]
  - Speech disorder [Not Recovered/Not Resolved]
  - Dry mouth [Not Recovered/Not Resolved]
  - Dry throat [Not Recovered/Not Resolved]

NARRATIVE: CASE EVENT DATE: 20250101
